FAERS Safety Report 14212267 (Version 1)
Quarter: 2017Q4

REPORT INFORMATION
  Report Type: Spontaneous
  Country: IT (occurrence: IT)
  Receive Date: 20171122
  Receipt Date: 20171122
  Transmission Date: 20180321
  Serious: Yes (Other)
  Sender: FDA-Public Use
  Company Number: IT-BAYER-2017-220186

PATIENT
  Age: 46 Year
  Sex: Male

DRUGS (4)
  1. COLIMYCIN [COLISTIN SULFOMETHATE] [Concomitant]
     Route: 042
  2. CEFTAZIDIME. [Concomitant]
     Active Substance: CEFTAZIDIME
     Route: 042
  3. CIPROFLOXACIN. [Suspect]
     Active Substance: CIPROFLOXACIN
     Dosage: DAILY DOSE 1200 MG
     Route: 041
     Dates: start: 20170916, end: 20170927
  4. METHYLPREDNISOLONE. [Concomitant]
     Active Substance: METHYLPREDNISOLONE
     Route: 042

REACTIONS (1)
  - Venous thrombosis [Unknown]

NARRATIVE: CASE EVENT DATE: 20170927
